FAERS Safety Report 7440765-8 (Version None)
Quarter: 2011Q2

REPORT INFORMATION
  Report Type: 
  Country: None (occurrence: None)
  Receive Date: 20110427
  Receipt Date: 20110420
  Transmission Date: 20111010
  Serious: Yes (Death)
  Sender: FDA-Public Use
  Company Number: CN-PFIZER INC-2011086776

PATIENT
  Age: 60 Year

DRUGS (2)
  1. ZYVOX [Suspect]
     Indication: STAPHYLOCOCCAL INFECTION
     Dosage: UNK
     Dates: start: 20110401
  2. MEPEM [Concomitant]
     Indication: INFECTION
     Dosage: UNK
     Dates: end: 20110401

REACTIONS (1)
  - LACTIC ACIDOSIS [None]
